FAERS Safety Report 8237269-1 (Version None)
Quarter: 2012Q1

REPORT INFORMATION
  Report Type: 
  Country: None (occurrence: None)
  Receive Date: 20120327
  Receipt Date: 20120327
  Transmission Date: 20120608
  Serious: Yes (Hospitalization)
  Sender: FDA-Public Use
  Company Number: None

PATIENT
  Age: 66 Year
  Sex: Male
  Weight: 122.46 kg

DRUGS (1)
  1. CLARITIN REDITABS [Suspect]
     Indication: MULTIPLE ALLERGIES
     Route: 048
     Dates: start: 20120322, end: 20120322

REACTIONS (5)
  - VISUAL IMPAIRMENT [None]
  - SKULL FRACTURE [None]
  - MEMORY IMPAIRMENT [None]
  - FALL [None]
  - CEREBRAL HAEMORRHAGE [None]
